FAERS Safety Report 6589837-0 (Version None)
Quarter: 2010Q1

REPORT INFORMATION
  Report Type: 
  Country: None (occurrence: None)
  Receive Date: 20100212
  Receipt Date: 20100128
  Transmission Date: 20100710
  Serious: Yes (Hospitalization, Other)
  Sender: FDA-Public Use
  Company Number: ISPH-2010-0017

PATIENT
  Age: 83 Year
  Sex: Female
  Weight: 58 kg

DRUGS (11)
  1. AZASITE [Suspect]
     Indication: EYE PRURITUS
     Dosage: 2 GTT, BID, OPHTHALMIC, 1 GTT, BID, OPHTHALMIC
     Route: 047
     Dates: start: 20100113, end: 20100114
  2. AZASITE [Suspect]
     Indication: EYE SWELLING
     Dosage: 2 GTT, BID, OPHTHALMIC, 1 GTT, BID, OPHTHALMIC
     Route: 047
     Dates: start: 20100113, end: 20100114
  3. AZASITE [Suspect]
     Indication: HYPERSENSITIVITY
     Dosage: 2 GTT, BID, OPHTHALMIC, 1 GTT, BID, OPHTHALMIC
     Route: 047
     Dates: start: 20100113, end: 20100114
  4. AZASITE [Suspect]
     Indication: EYE PRURITUS
     Dosage: 2 GTT, BID, OPHTHALMIC, 1 GTT, BID, OPHTHALMIC
     Route: 047
     Dates: start: 20100115, end: 20100116
  5. AZASITE [Suspect]
     Indication: EYE SWELLING
     Dosage: 2 GTT, BID, OPHTHALMIC, 1 GTT, BID, OPHTHALMIC
     Route: 047
     Dates: start: 20100115, end: 20100116
  6. AZASITE [Suspect]
     Indication: HYPERSENSITIVITY
     Dosage: 2 GTT, BID, OPHTHALMIC, 1 GTT, BID, OPHTHALMIC
     Route: 047
     Dates: start: 20100115, end: 20100116
  7. ATENOLOL [Concomitant]
  8. LEVOTHYROXINE SODIUM [Concomitant]
  9. CENTRUM SILVER (VITAMINS NOS, ZINC) [Concomitant]
  10. OSCAL (VITAMIN D NOS) [Concomitant]
  11. VITAMIN D [Concomitant]

REACTIONS (8)
  - BLISTER [None]
  - CELLULITIS [None]
  - DRUG HYPERSENSITIVITY [None]
  - EYE PAIN [None]
  - EYELID EXFOLIATION [None]
  - EYELIDS PRURITUS [None]
  - RASH [None]
  - SWELLING [None]
